FAERS Safety Report 5420486-3 (Version None)
Quarter: 2007Q3

REPORT INFORMATION
  Report Type: 
  Country: None (occurrence: None)
  Receive Date: 20070821
  Receipt Date: 20070814
  Transmission Date: 20080115
  Serious: Yes (Other)
  Sender: FDA-Public Use
  Company Number: PHBS2007BR13707

PATIENT
  Age: 54 Year
  Sex: Male
  Weight: 80 kg

DRUGS (3)
  1. HYDERGINE [Suspect]
     Dosage: 30 DROPS AT LUNCH TIME
     Route: 048
  2. CLONAZEPAM [Concomitant]
     Dosage: 2 MG, BID
     Route: 048
  3. TENADREN [Concomitant]
     Indication: HYPERTENSION
     Dosage: 40 MG, QD
     Route: 048

REACTIONS (7)
  - ANXIETY [None]
  - DYSPNOEA [None]
  - HEADACHE [None]
  - MALAISE [None]
  - NASAL CONGESTION [None]
  - NAUSEA [None]
  - PAIN [None]
